FAERS Safety Report 6594070-2 (Version None)
Quarter: 2010Q1

REPORT INFORMATION
  Report Type: 
  Country: None (occurrence: None)
  Receive Date: 20100222
  Receipt Date: 20100218
  Transmission Date: 20100710
  Serious: Yes (Hospitalization)
  Sender: FDA-Public Use
  Company Number: JP-ROCHE-621132

PATIENT
  Sex: Female
  Weight: 46.7 kg

DRUGS (20)
  1. OCRELIZUMAB [Suspect]
     Indication: RHEUMATOID ARTHRITIS
     Route: 042
     Dates: start: 20080416
  2. OCRELIZUMAB [Suspect]
     Dosage: OPEN LABEL: 1ST ADMINISTRATION.
     Route: 042
     Dates: start: 20090603
  3. OCRELIZUMAB [Suspect]
     Dosage: 2ND ADMINISTRATION.
     Route: 042
     Dates: start: 20090617
  4. BLINDED OCRELIZUMAB [Suspect]
     Indication: RHEUMATOID ARTHRITIS
     Dosage: 1ST ADMINISTRATION.  DOSE BLINDED.
     Route: 042
     Dates: start: 20080416
  5. BLINDED OCRELIZUMAB [Suspect]
     Dosage: DAY 15 - 2ND ADMINISTRATION.
     Route: 042
     Dates: start: 20080430
  6. BLINDED OCRELIZUMAB [Suspect]
     Dosage: WEEK 24 - 3RD ADMINISTRATION
     Route: 042
     Dates: start: 20081001
  7. BLINDED OCRELIZUMAB [Suspect]
     Dosage: WEEK 26 - 4TH ADMINISTRATION.
     Route: 042
     Dates: start: 20081015
  8. ZOPICLONE [Concomitant]
     Dates: start: 20050405
  9. PREDNISOLONE [Concomitant]
     Dates: start: 20081120
  10. PREDNISOLONE [Concomitant]
     Dates: start: 20091007
  11. FAMOTIDINE [Concomitant]
     Dates: start: 20010801
  12. BUCILLAMINE [Concomitant]
     Dates: start: 20010801
  13. FOLIC ACID [Concomitant]
     Dates: start: 20050512
  14. METHOTREXATE [Concomitant]
     Dates: start: 20050630
  15. LOXOPROFEN SODIUM [Concomitant]
     Dates: start: 20010801
  16. LOXOPROFEN SODIUM [Concomitant]
     Dates: start: 20091007
  17. MISOPROSTOL [Concomitant]
     Dates: start: 20050908
  18. MISOPROSTOL [Concomitant]
     Dates: start: 20091007
  19. TERBINAFINE HYDROCHLORIDE [Concomitant]
     Dosage: DOSE: MODERATE AMOUNT.
     Dates: start: 20070927
  20. SODIUM HYALURONATE [Concomitant]
     Dates: start: 20081120

REACTIONS (5)
  - ARTHROPATHY [None]
  - HYPOTENSION [None]
  - JOINT RANGE OF MOTION DECREASED [None]
  - POSTOPERATIVE FEVER [None]
  - TENDON RUPTURE [None]
